FAERS Safety Report 11403727 (Version 2)
Quarter: 2015Q4

REPORT INFORMATION
  Report Type: Spontaneous
  Country: GB (occurrence: GB)
  Receive Date: 20150821
  Receipt Date: 20151105
  Transmission Date: 20160304
  Serious: Yes (Life-Threatening, Hospitalization)
  Sender: FDA-Public Use
  Company Number: GB-SA-2015SA124159

PATIENT
  Age: 67 Year
  Sex: Male
  Weight: 72 kg

DRUGS (5)
  1. DRONEDARONE [Suspect]
     Active Substance: DRONEDARONE
     Indication: ARRHYTHMIA SUPRAVENTRICULAR
     Route: 048
     Dates: start: 2014, end: 20140516
  2. PREDNISOLONE. [Concomitant]
     Active Substance: PREDNISOLONE
  3. PREDNISOLONE. [Concomitant]
     Active Substance: PREDNISOLONE
  4. AMIODARONE [Suspect]
     Active Substance: AMIODARONE
     Route: 065
  5. PREDNISOLONE. [Concomitant]
     Active Substance: PREDNISOLONE

REACTIONS (3)
  - Oxygen saturation decreased [Recovering/Resolving]
  - Pulmonary toxicity [Not Recovered/Not Resolved]
  - Organising pneumonia [Not Recovered/Not Resolved]

NARRATIVE: CASE EVENT DATE: 20140510
